FAERS Safety Report 20899150 (Version 2)
Quarter: 2022Q2

REPORT INFORMATION
  Report Type: Spontaneous
  Country: AT (occurrence: AT)
  Receive Date: 20220601
  Receipt Date: 20220620
  Transmission Date: 20220721
  Serious: Yes (Other)
  Sender: FDA-Public Use
  Company Number: AT-Biofrontera-2021BIO00022

PATIENT
  Age: 62 Year
  Sex: Female
  Weight: 60 kg

DRUGS (4)
  1. AMELUZ [Suspect]
     Active Substance: AMINOLEVULINIC ACID HYDROCHLORIDE
     Indication: Actinic keratosis
     Route: 061
     Dates: start: 20210223, end: 20210223
  2. Thyrex100?gtablet [Concomitant]
     Indication: Hypothyroidism
     Dosage: 100?G, 1 TABLET A DAY, SIX DAYS A WEEK
     Route: 050
     Dates: start: 2011
  3. Ciscutan5mgcapsules [Concomitant]
     Indication: Acne
     Dosage: 5 MG ONCE A DAY ON MON, WED, FRI, SUN
  4. SOLARAZE [Concomitant]
     Active Substance: DICLOFENAC SODIUM
     Indication: Actinic keratosis

REACTIONS (6)
  - Blister [Recovered/Resolved]
  - Scar [Recovered/Resolved]
  - Disease recurrence [Not Recovered/Not Resolved]
  - Actinic keratosis [Not Recovered/Not Resolved]
  - Bacterial infection [Unknown]
  - Basal cell carcinoma [Not Recovered/Not Resolved]

NARRATIVE: CASE EVENT DATE: 20210101
